FAERS Safety Report 9499066 (Version 1)
Quarter: 2013Q3

REPORT INFORMATION
  Report Type: Spontaneous
  Country: US (occurrence: US)
  Receive Date: 20130904
  Receipt Date: 20130904
  Transmission Date: 20140515
  Serious: Yes (Other)
  Sender: FDA-Public Use
  Company Number: US-ACTAVIS-2013-15179

PATIENT
  Age: 61 Year
  Sex: Female

DRUGS (7)
  1. CLONIDINE (WATSON LABORATORIES) [Suspect]
     Indication: HYPERTENSION
     Dosage: UNK
     Route: 048
  2. METOPROLOL [Suspect]
     Indication: HYPERTENSION
     Dosage: UNK
     Route: 048
  3. HYDROCHLOROTHIAZIDE [Suspect]
     Indication: HYPERTENSION
     Dosage: UNK
     Route: 048
  4. AMLODIPINE BESYLATE [Suspect]
     Indication: HYPERTENSION
     Dosage: UNK
     Route: 048
  5. CETIRIZINE HYDROCHLORIDE [Suspect]
     Indication: HYPERTENSION
     Dosage: UNK
     Route: 048
  6. ASPIRIN (UNKNOWN) [Suspect]
     Indication: PRODUCT USED FOR UNKNOWN INDICATION
     Dosage: UNK
     Route: 065
  7. INDIGO CARMINE [Suspect]
     Indication: PRODUCT USED FOR UNKNOWN INDICATION

REACTIONS (4)
  - Angioedema [Recovered/Resolved]
  - Urticaria chronic [Unknown]
  - Nasal polyps [Unknown]
  - Reaction to drug excipients [Unknown]
